FAERS Safety Report 7312028-2 (Version None)
Quarter: 2011Q1

REPORT INFORMATION
  Report Type: 
  Country: None (occurrence: None)
  Receive Date: 20110224
  Receipt Date: 20110218
  Transmission Date: 20110831
  Serious: Yes (Other)
  Sender: FDA-Public Use
  Company Number: US-PFIZER INC-US-WYE-H04801408

PATIENT
  Sex: Female

DRUGS (3)
  1. PREMPRO [Suspect]
     Indication: HORMONE REPLACEMENT THERAPY
     Dosage: 0.625/2.5 UNK
     Route: 048
     Dates: start: 19960301, end: 19980325
  2. ACETYLSALICYLIC ACID [Concomitant]
     Indication: STENT PLACEMENT
     Dosage: UNK
     Dates: start: 20020101
  3. PREMARIN [Suspect]
     Indication: HORMONE REPLACEMENT THERAPY
     Dosage: 0.625 MG, UNK
     Route: 048
     Dates: start: 19910301, end: 19960301

REACTIONS (2)
  - BREAST CANCER METASTATIC [None]
  - THROMBOPHLEBITIS SUPERFICIAL [None]
